FAERS Safety Report 14877034 (Version 3)
Quarter: 2018Q4

REPORT INFORMATION
  Report Type: Spontaneous
  Country: GB (occurrence: GB)
  Receive Date: 20180510
  Receipt Date: 20181207
  Transmission Date: 20190204
  Serious: Yes (Death)
  Sender: FDA-Public Use
  Company Number: GB-BAYER-2018-086413

PATIENT
  Age: 85 Year
  Sex: Male

DRUGS (10)
  1. ALENDRONIC ACID [Concomitant]
     Active Substance: ALENDRONIC ACID
     Dosage: 70 MG, UNK
  2. ORAMORPH [Concomitant]
     Active Substance: MORPHINE SULFATE
     Indication: BREAKTHROUGH PAIN
  3. ZOLADEX [Concomitant]
     Active Substance: GOSERELIN ACETATE
  4. DEXAMETHASONE. [Concomitant]
     Active Substance: DEXAMETHASONE
     Dosage: 0.5 MG, UNK
  5. CALCIUM CARBONATE. [Concomitant]
     Active Substance: CALCIUM CARBONATE
  6. AMLODIPINE [Concomitant]
     Active Substance: AMLODIPINE BESYLATE
  7. XOFIGO [Suspect]
     Active Substance: RADIUM RA-223 DICHLORIDE
     Dosage: 4760 MBQ, ONCE
     Route: 042
     Dates: start: 20171129, end: 20171129
  8. CALCITRIOL. [Concomitant]
     Active Substance: CALCITRIOL
  9. MACROGOL;POTASSIUM CHLORIDE;SODIUM BICARBONATE;SODIUM CHLORIDE [Concomitant]
     Indication: CONSTIPATION
  10. ATORVASTATIN [Concomitant]
     Active Substance: ATORVASTATIN
     Dosage: 10 MG, UNK

REACTIONS (5)
  - Lower respiratory tract infection [Fatal]
  - Groin pain [Not Recovered/Not Resolved]
  - Parotitis [Fatal]
  - Oral candidiasis [None]
  - Asthenia [None]

NARRATIVE: CASE EVENT DATE: 20171130
